FAERS Safety Report 20986220 (Version 1)
Quarter: 2022Q2

REPORT INFORMATION
  Report Type: Report from Study
  Country: MX (occurrence: MX)
  Receive Date: 20220621
  Receipt Date: 20220621
  Transmission Date: 20220720
  Serious: Yes (Hospitalization)
  Sender: FDA-Public Use
  Company Number: MX-BAYER-2022P004977

PATIENT
  Sex: Female

DRUGS (1)
  1. REGORAFENIB [Suspect]
     Active Substance: REGORAFENIB
     Indication: Colorectal cancer
     Dosage: 2 TABLETS EVERY 24 HOURS FOR 3 WEEKS WITH ONE WEEK OFF
     Route: 048
     Dates: start: 202205

REACTIONS (4)
  - Dehydration [None]
  - Diarrhoea [None]
  - Haemorrhoidal haemorrhage [None]
  - Erythema [None]
